FAERS Safety Report 13075902 (Version 1)
Quarter: 2016Q4

REPORT INFORMATION
  Report Type: Spontaneous
  Country: US (occurrence: US)
  Receive Date: 20161230
  Receipt Date: 20161230
  Transmission Date: 20170207
  Serious: No
  Sender: FDA-Public Use
  Company Number: None

PATIENT
  Age: 62 Year
  Sex: Female

DRUGS (1)
  1. METFORMIN [Suspect]
     Active Substance: METFORMIN HYDROCHLORIDE
     Indication: DIABETES MELLITUS
     Dosage: 1 TABLET BID ORAL
     Route: 048
     Dates: start: 20161006

REACTIONS (2)
  - Product substitution issue [None]
  - Blood glucose increased [None]

NARRATIVE: CASE EVENT DATE: 20161019
